FAERS Safety Report 13446390 (Version 1)
Quarter: 2017Q2

REPORT INFORMATION
  Report Type: Spontaneous
  Country: SK (occurrence: SK)
  Receive Date: 20170417
  Receipt Date: 20170417
  Transmission Date: 20170830
  Serious: Yes (Other)
  Sender: FDA-Public Use
  Company Number: SK-ACCORD-050251

PATIENT
  Age: 8 Year
  Sex: Male

DRUGS (5)
  1. DAUNORUBICIN [Suspect]
     Active Substance: DAUNORUBICIN
     Indication: B PRECURSOR TYPE ACUTE LEUKAEMIA
     Dates: start: 20160302
  2. ASPARAGINASE [Suspect]
     Active Substance: ASPARAGINASE
     Indication: B PRECURSOR TYPE ACUTE LEUKAEMIA
  3. PREDNISONE. [Suspect]
     Active Substance: PREDNISONE
     Indication: B PRECURSOR TYPE ACUTE LEUKAEMIA
     Dosage: DOSE: 100 %
     Dates: start: 20160302
  4. METHOTREXATE. [Suspect]
     Active Substance: METHOTREXATE
     Indication: B PRECURSOR TYPE ACUTE LEUKAEMIA
     Route: 037
  5. VINCRISTINE [Suspect]
     Active Substance: VINCRISTINE
     Indication: B PRECURSOR TYPE ACUTE LEUKAEMIA

REACTIONS (7)
  - Ileus paralytic [Unknown]
  - Tachycardia [Unknown]
  - Polyneuropathy [Unknown]
  - Pancytopenia [Unknown]
  - Neurotoxicity [Unknown]
  - Febrile neutropenia [Unknown]
  - Inappropriate antidiuretic hormone secretion [Unknown]
